FAERS Safety Report 9772502 (Version 1)
Quarter: 2013Q4

REPORT INFORMATION
  Report Type: Spontaneous
  Country: US (occurrence: None)
  Receive Date: 20131218
  Receipt Date: 20131218
  Transmission Date: 20140711
  Serious: Yes (Other)
  Sender: FDA-Public Use
  Company Number: 2013CT000078

PATIENT
  Sex: Female

DRUGS (3)
  1. KORLYM [Suspect]
     Indication: CUSHING^S SYNDROME
     Dates: start: 201309
  2. LASIX /00032601/ [Concomitant]
  3. POTASSIUM /00031402/ [Concomitant]

REACTIONS (3)
  - Oedema peripheral [None]
  - Nausea [None]
  - Blood glucose increased [None]
